FAERS Safety Report 5931269-X (Version None)
Quarter: 2008Q4

REPORT INFORMATION
  Report Type: 
  Country: None (occurrence: None)
  Receive Date: 20081027
  Receipt Date: 20081017
  Transmission Date: 20090506
  Serious: Yes (Death)
  Sender: FDA-Public Use
  Company Number: US-AVENTIS-200819945GDDC

PATIENT
  Age: 83 Year
  Sex: Male
  Weight: 91.6 kg

DRUGS (4)
  1. TAXOTERE [Suspect]
     Indication: PROSTATE CANCER
     Route: 042
     Dates: start: 20080925, end: 20081015
  2. PREDNISONE TAB [Suspect]
     Indication: PROSTATE CANCER
     Route: 048
     Dates: start: 20080925, end: 20081015
  3. CODE UNBROKEN [Suspect]
     Indication: PROSTATE CANCER
     Route: 048
     Dates: start: 20080925, end: 20081015
  4. DEXAMETHASONE 0.5MG TAB [Suspect]
     Indication: PROSTATE CANCER
     Dates: start: 20080925, end: 20081015

REACTIONS (1)
  - SUDDEN DEATH [None]
